FAERS Safety Report 4636432-6 (Version None)
Quarter: 2005Q2

REPORT INFORMATION
  Report Type: 
  Country: None (occurrence: None)
  Receive Date: 20050413
  Receipt Date: 20050413
  Transmission Date: 20051028
  Serious: No
  Sender: FDA-Public Use
  Company Number: None

PATIENT
  Sex: Male

DRUGS (1)
  1. ROCEPHIN [Suspect]
     Dosage: 1 GM     DAILY
     Dates: start: 20040301, end: 20050310

REACTIONS (1)
  - PANCYTOPENIA [None]
